FAERS Safety Report 11204047 (Version 1)
Quarter: 2015Q2

REPORT INFORMATION
  Report Type: Spontaneous
  Country: US (occurrence: US)
  Receive Date: 20150619
  Receipt Date: 20150619
  Transmission Date: 20150821
  Serious: Yes (Death, Other)
  Sender: FDA-Public Use
  Company Number: PHHY2015US072420

PATIENT
  Age: 63 Year
  Sex: Male

DRUGS (10)
  1. EVEROLIMUS [Suspect]
     Active Substance: EVEROLIMUS
     Indication: METASTATIC RENAL CELL CARCINOMA
     Route: 065
  2. CYCLOPHOSPHAMIDE. [Suspect]
     Active Substance: CYCLOPHOSPHAMIDE
     Indication: STEM CELL TRANSPLANT
     Route: 065
  3. SUNITINIB [Suspect]
     Active Substance: SUNITINIB
     Indication: METASTATIC RENAL CELL CARCINOMA
     Route: 065
  4. IMATINIB [Suspect]
     Active Substance: IMATINIB
     Indication: METASTATIC RENAL CELL CARCINOMA
     Route: 065
  5. ERLOTINIB [Suspect]
     Active Substance: ERLOTINIB
     Indication: METASTATIC RENAL CELL CARCINOMA
     Route: 065
  6. CYCLOPHOSPHAMIDE. [Suspect]
     Active Substance: CYCLOPHOSPHAMIDE
     Indication: IMMUNOSUPPRESSION
  7. SIROLIMUS. [Suspect]
     Active Substance: SIROLIMUS
     Indication: STEM CELL TRANSPLANT
     Route: 065
  8. SIROLIMUS. [Suspect]
     Active Substance: SIROLIMUS
     Indication: IMMUNOSUPPRESSION
  9. NIPENT [Suspect]
     Active Substance: PENTOSTATIN
     Indication: STEM CELL TRANSPLANT
     Route: 065
  10. AVASTIN [Suspect]
     Active Substance: BEVACIZUMAB
     Indication: METASTATIC RENAL CELL CARCINOMA
     Route: 065

REACTIONS (14)
  - Metastases to gastrointestinal tract [Unknown]
  - Metastases to kidney [Unknown]
  - Metastases to pancreas [Unknown]
  - Acute graft versus host disease in liver [Fatal]
  - Metastases to lung [Unknown]
  - Malignant neoplasm progression [Fatal]
  - Metastases to heart [Unknown]
  - Acute graft versus host disease in intestine [Fatal]
  - Metastases to adrenals [Unknown]
  - Metastases to pleura [Unknown]
  - Metastases to bone [Unknown]
  - Metastases to lymph nodes [Unknown]
  - Acute graft versus host disease in skin [Fatal]
  - Infection [Fatal]
